FAERS Safety Report 7718832-0 (Version None)
Quarter: 2011Q3

REPORT INFORMATION
  Report Type: 
  Country: None (occurrence: None)
  Receive Date: 20110830
  Receipt Date: 20110822
  Transmission Date: 20111222
  Serious: Yes (Other)
  Sender: FDA-Public Use
  Company Number: US-BAYER-2011-063776

PATIENT
  Age: 34 Year
  Sex: Female
  Weight: 72.562 kg

DRUGS (1)
  1. MIRENA [Suspect]
     Indication: ORAL CONTRACEPTION
     Dosage: 20 MCG/24HR, CONT
     Route: 015
     Dates: start: 20100824

REACTIONS (2)
  - DEVICE BREAKAGE [None]
  - DEVICE DISLOCATION [None]
